FAERS Safety Report 8876318 (Version 1)
Quarter: 2012Q4

REPORT INFORMATION
  Report Type: 
  Country: DE (occurrence: DE)
  Receive Date: 20121031
  Receipt Date: 20121031
  Transmission Date: 20130627
  Serious: Yes (Death, Other)
  Sender: FDA-Public Use
  Company Number: DE-JNJFOC-20120909248

PATIENT
  Sex: Male
  Weight: 97 kg

DRUGS (7)
  1. XARELTO [Suspect]
     Indication: ATRIAL FIBRILLATION
     Route: 065
  2. XARELTO [Suspect]
     Indication: CEREBROVASCULAR ACCIDENT PROPHYLAXIS
     Route: 065
  3. VALSARTAN [Concomitant]
  4. TORASEMID [Concomitant]
  5. INSULIN GLARGINE [Concomitant]
  6. CONCOR [Concomitant]
  7. EXELON [Concomitant]

REACTIONS (2)
  - Haematemesis [Fatal]
  - Gastric haemorrhage [Unknown]
